APPROVED DRUG PRODUCT: RAMIPRIL
Active Ingredient: RAMIPRIL
Strength: 5MG
Dosage Form/Route: CAPSULE;ORAL
Application: A076549 | Product #003
Applicant: WATSON LABORATORIES INC
Approved: Oct 24, 2005 | RLD: No | RS: No | Type: DISCN